FAERS Safety Report 11264251 (Version 1)
Quarter: 2015Q3

REPORT INFORMATION
  Report Type: Spontaneous
  Country: GB (occurrence: None)
  Receive Date: 20150709
  Receipt Date: 20150709
  Transmission Date: 20151125
  Serious: Yes (Disabling, Other)
  Sender: FDA-Public Use
  Company Number: GB-H14001-15-01021

PATIENT
  Age: 44 Year
  Sex: Female

DRUGS (2)
  1. CIPROFLOXACIN (CIPROFLOXACIN) (UNKNOWN) (CIPROFLOXACIN) [Suspect]
     Active Substance: CIPROFLOXACIN
     Indication: URINARY TRACT INFECTION
     Dosage: 1000 MG (500 MG, 2 IN 1 D), UNKNOWN
     Dates: start: 20150413, end: 20150425
  2. VAGIFEM (ESTRADIOL) (UNKNOWN) (ESTRADIOL) [Concomitant]

REACTIONS (7)
  - Headache [None]
  - Photosensitivity reaction [None]
  - Neuropathy peripheral [None]
  - Tendonitis [None]
  - Muscle spasms [None]
  - Depressed level of consciousness [None]
  - Abasia [None]

NARRATIVE: CASE EVENT DATE: 20150425
